FAERS Safety Report 9067738 (Version 1)
Quarter: 2013Q1

REPORT INFORMATION
  Report Type: Spontaneous
  Country: US (occurrence: US)
  Receive Date: 20130128
  Receipt Date: 20130128
  Transmission Date: 20140127
  Serious: Yes (Hospitalization)
  Sender: FDA-Public Use
  Company Number: US-ASTRAZENECA-2013SE04183

PATIENT
  Age: 44 Year
  Sex: Male
  Weight: 113.4 kg

DRUGS (5)
  1. SEROQUEL [Suspect]
     Indication: SCHIZOPHRENIA
     Route: 048
     Dates: start: 20070314
  2. SEROQUEL [Suspect]
     Indication: SCHIZOPHRENIA
     Route: 048
  3. HALDOL [Concomitant]
  4. LAMICTAL [Concomitant]
     Dates: start: 2001, end: 2003
  5. LAMICTAL [Concomitant]
     Dosage: STARTED AT 2 MG TWICE A DAY TITRATING UP IN 3 MONTHS TO 25 MG IN JUN-2007
     Dates: start: 200703

REACTIONS (6)
  - Nausea [Recovered/Resolved]
  - Stevens-Johnson syndrome [Unknown]
  - Throat lesion [Recovered/Resolved]
  - Sedation [Unknown]
  - Somnolence [Unknown]
  - Drug ineffective [Unknown]
